FAERS Safety Report 8074745-9 (Version None)
Quarter: 2012Q1

REPORT INFORMATION
  Report Type: 
  Country: None (occurrence: None)
  Receive Date: 20120126
  Receipt Date: 20120119
  Transmission Date: 20120608
  Serious: Yes (Hospitalization, Other)
  Sender: FDA-Public Use
  Company Number: US-MERCK-1109USA01508

PATIENT
  Age: 79 Year
  Sex: Female

DRUGS (10)
  1. FOLIC ACID [Concomitant]
     Route: 048
     Dates: start: 19900101
  2. SIMVASTATIN [Concomitant]
     Indication: BLOOD CHOLESTEROL
     Route: 048
     Dates: start: 19930101
  3. FOSAMAX [Suspect]
     Route: 048
     Dates: start: 20080301, end: 20090101
  4. OMEPRAZOLE [Concomitant]
     Indication: DYSPEPSIA
     Route: 048
     Dates: start: 20050101
  5. OMEGA-3 MARINE TRIGLYCERIDES [Concomitant]
     Route: 048
     Dates: start: 19900101
  6. CALCIUM (UNSPECIFIED) [Concomitant]
     Route: 065
     Dates: start: 19900101
  7. DIOVAN [Concomitant]
     Indication: BLOOD PRESSURE
     Route: 048
     Dates: start: 19950101
  8. FOSAMAX [Suspect]
     Indication: OSTEOPENIA
     Route: 048
     Dates: start: 20060301, end: 20080301
  9. VITAMINS (UNSPECIFIED) [Concomitant]
     Route: 048
     Dates: start: 19900101
  10. MAXZIDE [Concomitant]
     Indication: DIURETIC THERAPY
     Route: 048
     Dates: start: 20000101

REACTIONS (43)
  - FEMUR FRACTURE [None]
  - CARDIAC DISORDER [None]
  - EAR DISORDER [None]
  - FATIGUE [None]
  - RENAL FAILURE [None]
  - NECK PAIN [None]
  - STITCH ABSCESS [None]
  - MALAISE [None]
  - ADVERSE EVENT [None]
  - CONTUSION [None]
  - FALL [None]
  - PSORIASIS [None]
  - DIZZINESS [None]
  - VASCULAR CALCIFICATION [None]
  - TRIGGER FINGER [None]
  - TONSILLAR HYPERTROPHY [None]
  - PNEUMONIA LEGIONELLA [None]
  - OSTEOARTHRITIS [None]
  - GASTROENTERITIS [None]
  - HIATUS HERNIA [None]
  - HUMERUS FRACTURE [None]
  - CELLULITIS [None]
  - BLOOD GLUCOSE INCREASED [None]
  - LOW TURNOVER OSTEOPATHY [None]
  - GASTROOESOPHAGEAL REFLUX DISEASE [None]
  - FOREIGN BODY [None]
  - RED BLOOD CELL COUNT DECREASED [None]
  - VARICOSE VEIN [None]
  - HEADACHE [None]
  - ADENOIDAL HYPERTROPHY [None]
  - CALCINOSIS [None]
  - CARPAL TUNNEL SYNDROME [None]
  - CORONARY ARTERY DISEASE [None]
  - DEHYDRATION [None]
  - DRUG INEFFECTIVE [None]
  - POOR QUALITY SLEEP [None]
  - SINUS CONGESTION [None]
  - JOINT INJURY [None]
  - INFLAMMATION [None]
  - BONE DISORDER [None]
  - HYPERTENSION [None]
  - MUSCLE STRAIN [None]
  - HYPOTENSION [None]
